FAERS Safety Report 4706764-1 (Version None)
Quarter: 2005Q2

REPORT INFORMATION
  Report Type: 
  Country: None (occurrence: None)
  Receive Date: 20050629
  Receipt Date: 20050301
  Transmission Date: 20051028
  Serious: No
  Sender: FDA-Public Use
  Company Number: 05P-163-0292403-00

PATIENT
  Age: 71 Year
  Sex: Female
  Weight: 63.5036 kg

DRUGS (11)
  1. HUMIRA [Suspect]
     Indication: RHEUMATOID ARTHRITIS
     Dosage: 40 MG, 1 IN 2 WK, SUBCUTANEOUS
     Route: 058
     Dates: start: 20041001
  2. NABUMETONE [Concomitant]
  3. TRIAMTERENE [Concomitant]
  4. POTASSIUM CHLORIDE [Concomitant]
  5. LANSOPRAZOLE [Concomitant]
  6. ESTROGENS CONJUGATED [Concomitant]
  7. NICOTINIC ACID [Concomitant]
  8. FUROSEMIDE [Concomitant]
  9. FOLIC ACID [Concomitant]
  10. ISOPHANE INSULIN [Concomitant]
  11. METHOTREXATE [Concomitant]

REACTIONS (6)
  - BLOOD PRESSURE INCREASED [None]
  - DIZZINESS [None]
  - HYPOAESTHESIA [None]
  - INJECTION SITE IRRITATION [None]
  - NAUSEA [None]
  - RHEUMATOID ARTHRITIS [None]
